FAERS Safety Report 11044454 (Version 2)
Quarter: 2015Q2

REPORT INFORMATION
  Report Type: Report from Study
  Country: BR (occurrence: BR)
  Receive Date: 20150417
  Receipt Date: 20150506
  Transmission Date: 20150821
  Serious: Yes (Other)
  Sender: FDA-Public Use
  Company Number: BR-SA-2015SA049394

PATIENT
  Age: 66 Year
  Sex: Male
  Weight: 72 kg

DRUGS (3)
  1. INSULIN [Concomitant]
     Active Substance: INSULIN NOS
     Dates: start: 201503
  2. LANTUS [Suspect]
     Active Substance: INSULIN GLARGINE
     Indication: TYPE 2 DIABETES MELLITUS
     Route: 065
     Dates: start: 2012
  3. CLIKSTAR [Concomitant]
     Active Substance: CLIKSTAR
     Indication: TYPE 2 DIABETES MELLITUS
     Dates: start: 2007

REACTIONS (6)
  - Dysuria [Recovering/Resolving]
  - Erectile dysfunction [Unknown]
  - Post procedural complication [Recovering/Resolving]
  - Calculus bladder [Recovering/Resolving]
  - Penile prosthesis insertion [Unknown]
  - Stent placement [Unknown]

NARRATIVE: CASE EVENT DATE: 2014
